FAERS Safety Report 17631934 (Version 2)
Quarter: 2020Q2

REPORT INFORMATION
  Report Type: Spontaneous
  Country: AU (occurrence: AU)
  Receive Date: 20200406
  Receipt Date: 20200422
  Transmission Date: 20200713
  Serious: Yes (Other)
  Sender: FDA-Public Use
  Company Number: AU-JNJFOC-20200336128

PATIENT
  Age: 42 Year
  Sex: Male

DRUGS (2)
  1. OLANZAPINE. [Suspect]
     Active Substance: OLANZAPINE
     Indication: PRODUCT USED FOR UNKNOWN INDICATION
     Route: 065
  2. RISPERIDONE. [Suspect]
     Active Substance: RISPERIDONE
     Indication: PRODUCT USED FOR UNKNOWN INDICATION
     Route: 065

REACTIONS (7)
  - Cogwheel rigidity [Unknown]
  - Blood creatine phosphokinase increased [Unknown]
  - Seizure [Unknown]
  - Abnormal behaviour [Unknown]
  - Leukocytosis [Unknown]
  - C-reactive protein increased [Unknown]
  - Malaise [Unknown]

NARRATIVE: CASE EVENT DATE: 20190618
